FAERS Safety Report 7067937-9 (Version None)
Quarter: 2010Q4

REPORT INFORMATION
  Report Type: 
  Country: None (occurrence: None)
  Receive Date: 20101020
  Receipt Date: 20101012
  Transmission Date: 20110411
  Serious: Yes (Hospitalization)
  Sender: FDA-Public Use
  Company Number: 2010SP054970

PATIENT
  Age: 60 Year
  Sex: Female

DRUGS (1)
  1. SAPHRIS [Suspect]

REACTIONS (1)
  - TRANSIENT ISCHAEMIC ATTACK [None]
